FAERS Safety Report 18290227 (Version 1)
Quarter: 2020Q3

REPORT INFORMATION
  Report Type: Spontaneous
  Country: BR (occurrence: BR)
  Receive Date: 20200921
  Receipt Date: 20200921
  Transmission Date: 20201103
  Serious: Yes (Other)
  Sender: FDA-Public Use
  Company Number: NVSC2020BR255299

PATIENT
  Age: 59 Year
  Sex: Male

DRUGS (1)
  1. IMATINIB. [Suspect]
     Active Substance: IMATINIB MESYLATE
     Indication: CHRONIC MYELOID LEUKAEMIA
     Dosage: 400 MG, QD
     Route: 065
     Dates: start: 20111201, end: 201912

REACTIONS (6)
  - Cytogenetic analysis abnormal [Unknown]
  - Asthenia [Unknown]
  - Blood creatinine increased [Unknown]
  - Proteinuria [Unknown]
  - Abdominal discomfort [Unknown]
  - Creatinine renal clearance decreased [Unknown]

NARRATIVE: CASE EVENT DATE: 20161209
